FAERS Safety Report 11918301 (Version 3)
Quarter: 2016Q1

REPORT INFORMATION
  Report Type: Spontaneous
  Country: US (occurrence: US)
  Receive Date: 20160115
  Receipt Date: 20160304
  Transmission Date: 20160526
  Serious: No
  Sender: FDA-Public Use
  Company Number: US-ASTRAZENECA-2016SE03669

PATIENT
  Age: 68 Year
  Sex: Female
  Weight: 86 kg

DRUGS (1)
  1. NEXIUM 24HR [Suspect]
     Active Substance: ESOMEPRAZOLE MAGNESIUM
     Indication: GASTROOESOPHAGEAL REFLUX DISEASE
     Route: 048

REACTIONS (3)
  - Disease recurrence [Recovered/Resolved]
  - Insomnia [Recovered/Resolved]
  - Gastrooesophageal reflux disease [Recovered/Resolved]
